FAERS Safety Report 5520934-4 (Version None)
Quarter: 2007Q4

REPORT INFORMATION
  Report Type: 
  Country: None (occurrence: None)
  Receive Date: 20071119
  Receipt Date: 20071112
  Transmission Date: 20080405
  Serious: Yes (Hospitalization, Other)
  Sender: FDA-Public Use
  Company Number: DE-BRISTOL-MYERS SQUIBB COMPANY-13982640

PATIENT
  Age: 6 Decade
  Sex: Female

DRUGS (4)
  1. ABILIFY [Suspect]
     Route: 048
     Dates: start: 20060101
  2. CIPRALEX [Suspect]
     Dosage: DAILY DOSAGE:FROM 18-JUL-07 TO 23-JUL-07 IS 5 MG
     Route: 048
     Dates: start: 20070718, end: 20070730
  3. LAMOTRIGINE [Concomitant]
     Route: 048
     Dates: start: 20050101
  4. TRILEPTAL [Concomitant]
     Dosage: UNK/06 TO 17/JU/07 - 300MG/D,18/JUL TO 29/JUL - 450MG, 30/JUL TO 31/JUL - 600MG, 01/AUG/07 - 900MG
     Route: 048
     Dates: start: 20060101

REACTIONS (2)
  - HOSPITALISATION [None]
  - SEROTONIN SYNDROME [None]
